FAERS Safety Report 9842274 (Version 1)
Quarter: 2014Q1

REPORT INFORMATION
  Report Type: Spontaneous
  Country: AU (occurrence: AU)
  Receive Date: 20140124
  Receipt Date: 20140124
  Transmission Date: 20141002
  Serious: Yes (Other)
  Sender: FDA-Public Use
  Company Number: AU-ALLERGAN-1400978US

PATIENT
  Sex: 0

DRUGS (1)
  1. BOTOX [Suspect]
     Indication: PRODUCT USED FOR UNKNOWN INDICATION
     Dosage: UNK, SINGLE

REACTIONS (3)
  - Blindness [Unknown]
  - Deafness [Unknown]
  - Off label use [Unknown]
